FAERS Safety Report 16362414 (Version 3)
Quarter: 2019Q2

REPORT INFORMATION
  Report Type: Spontaneous
  Country: US (occurrence: US)
  Receive Date: 20190528
  Receipt Date: 20190531
  Transmission Date: 20190711
  Serious: No
  Sender: FDA-Public Use
  Company Number: US-PFIZER INC-2019221012

PATIENT
  Sex: Female

DRUGS (1)
  1. CELEBREX [Suspect]
     Active Substance: CELECOXIB
     Dosage: 200 MG, DAILY

REACTIONS (5)
  - Rash [Unknown]
  - Pruritus [Unknown]
  - Rash papular [Unknown]
  - Erythema [Unknown]
  - Drug hypersensitivity [Unknown]
